FAERS Safety Report 4442642-3 (Version None)
Quarter: 2004Q3

REPORT INFORMATION
  Report Type: 
  Country: None (occurrence: None)
  Receive Date: 20040903
  Receipt Date: 20040712
  Transmission Date: 20050211
  Serious: Yes (Other)
  Sender: FDA-Public Use
  Company Number: 2004UW11770

PATIENT
  Age: 80 Year
  Sex: Male
  Weight: 70.3075 kg

DRUGS (9)
  1. CRESTOR [Suspect]
     Indication: HYPERCHOLESTEROLAEMIA
     Dosage: 5 MG QD PO
     Route: 048
     Dates: start: 20040315, end: 20040320
  2. CRESTOR [Suspect]
     Indication: HYPERCHOLESTEROLAEMIA
     Dosage: 10 MG QD PO
     Route: 048
     Dates: start: 20040321, end: 20040605
  3. ASPIRIN [Concomitant]
  4. ATENOLOL [Concomitant]
  5. PROPYLTHIOURACIL [Concomitant]
  6. PREDNISONE [Concomitant]
  7. SOTALOL HCL [Concomitant]
  8. XANAX [Concomitant]
  9. CATAPRES-TTS-2 [Concomitant]

REACTIONS (7)
  - ABDOMINAL DISCOMFORT [None]
  - ALANINE AMINOTRANSFERASE INCREASED [None]
  - ASPARTATE AMINOTRANSFERASE INCREASED [None]
  - ASTHENIA [None]
  - BLEEDING TIME PROLONGED [None]
  - FLATULENCE [None]
  - MYALGIA [None]
